FAERS Safety Report 6677257-X (Version None)
Quarter: 2010Q2

REPORT INFORMATION
  Report Type: 
  Country: None (occurrence: None)
  Receive Date: 20100408
  Receipt Date: 20100408
  Transmission Date: 20101027
  Serious: Yes (Life-Threatening)
  Sender: FDA-Public Use
  Company Number: None

PATIENT
  Age: 56 Year
  Sex: Male
  Weight: 113 kg

DRUGS (12)
  1. LANTUS [Suspect]
     Indication: DIABETES MELLITUS
     Dosage: 70 UNITS DIVIDED/3 DOSES SUBQ
     Route: 058
  2. GLIPIZIDE [Suspect]
     Indication: DIABETES MELLITUS
     Dosage: 10 MG BID PO
     Route: 048
  3. METOPROLOL TARTRATE [Concomitant]
  4. LASIX [Concomitant]
  5. PROTONIX [Concomitant]
  6. K-DUR [Concomitant]
  7. COUMADIN [Concomitant]
  8. LEVAQUIN [Concomitant]
  9. BENICAR [Concomitant]
  10. MYFORTIC CREAM [Concomitant]
  11. DOPAMINE HCL [Concomitant]
  12. LOMOTIL [Concomitant]

REACTIONS (2)
  - HYPOGLYCAEMIA [None]
  - MENTAL STATUS CHANGES [None]
